FAERS Safety Report 13102319 (Version 2)
Quarter: 2017Q1

REPORT INFORMATION
  Report Type: Spontaneous
  Country: US (occurrence: US)
  Receive Date: 20170110
  Receipt Date: 20170214
  Transmission Date: 20170428
  Serious: No
  Sender: FDA-Public Use
  Company Number: US-TEVA-727587USA

PATIENT
  Sex: Female

DRUGS (2)
  1. VICKS VAPORUB [Concomitant]
     Active Substance: CAMPHOR (SYNTHETIC)\EUCALYPTUS OIL\MENTHOL
  2. PROAIR HFA [Suspect]
     Active Substance: ALBUTEROL SULFATE
     Route: 065
     Dates: end: 20170107

REACTIONS (4)
  - Medication residue present [Unknown]
  - Cough [Recovered/Resolved]
  - Product use issue [Unknown]
  - Product cleaning inadequate [Unknown]
